FAERS Safety Report 25981653 (Version 1)
Quarter: 2025Q4

REPORT INFORMATION
  Report Type: Spontaneous
  Country: US (occurrence: US)
  Receive Date: 20251031
  Receipt Date: 20251031
  Transmission Date: 20260118
  Serious: Yes (Other)
  Sender: NOVARTIS
  Company Number: US-002147023-NVSC2025US165798

PATIENT
  Age: 68 Year
  Sex: Female

DRUGS (1)
  1. SCEMBLIX [Suspect]
     Active Substance: ASCIMINIB HYDROCHLORIDE
     Indication: Philadelphia positive chronic myeloid leukaemia
     Dosage: 80 MG
     Route: 065
     Dates: start: 20251005, end: 20251019

REACTIONS (1)
  - Pancreatitis [Recovered/Resolved]
